FAERS Safety Report 11150240 (Version 2)
Quarter: 2015Q3

REPORT INFORMATION
  Report Type: Spontaneous
  Country: IT (occurrence: IT)
  Receive Date: 20150530
  Receipt Date: 20150708
  Transmission Date: 20151125
  Serious: Yes (Other)
  Sender: FDA-Public Use
  Company Number: IT-AUROBINDO-AUR-APL-2015-04697

PATIENT
  Age: 64 Year
  Sex: Male

DRUGS (1)
  1. AMOXICILLIN. [Suspect]
     Active Substance: AMOXICILLIN
     Indication: TOOTHACHE
     Dosage: 1 DF, TOTAL
     Route: 048
     Dates: start: 20150519, end: 20150519

REACTIONS (5)
  - Medication error [Recovering/Resolving]
  - Malaise [Recovering/Resolving]
  - Nausea [Recovering/Resolving]
  - Ischaemia [Recovering/Resolving]
  - Vomiting [Recovering/Resolving]

NARRATIVE: CASE EVENT DATE: 20150519
